FAERS Safety Report 8681467 (Version 2)
Quarter: 2012Q4

REPORT INFORMATION
  Report Type: 
  Country: US (occurrence: US)
  Receive Date: 20120725
  Receipt Date: 20120914
  Transmission Date: 20130627
  Serious: Yes (Disabling, Other)
  Sender: FDA-Public Use
  Company Number: US-JNJFOC-20120710144

PATIENT
  Age: 16 None
  Sex: Female
  Weight: 64.4 kg

DRUGS (15)
  1. REMICADE [Suspect]
     Indication: CROHN^S DISEASE
     Route: 042
     Dates: start: 201206
  2. REMICADE [Suspect]
     Indication: CROHN^S DISEASE
     Route: 042
     Dates: start: 200306, end: 200310
  3. METHOTREXATE [Suspect]
     Indication: PRODUCT USED FOR UNKNOWN INDICATION
     Route: 065
  4. 6 MP [Concomitant]
     Route: 065
  5. PENTASA [Concomitant]
     Route: 065
  6. STEROIDS NOS [Concomitant]
     Route: 065
  7. FERROUS SULFATE [Concomitant]
     Route: 065
  8. MULTIVITAMINS [Concomitant]
     Route: 065
  9. TPN [Concomitant]
     Route: 065
  10. SOLU MEDROL [Concomitant]
     Route: 065
  11. CALAMINE [Concomitant]
     Route: 065
  12. COLAZAL [Concomitant]
     Route: 065
  13. BACTROBAN [Concomitant]
     Route: 065
  14. FOLIC ACID [Concomitant]
     Route: 065
  15. FLAGYL [Concomitant]
     Route: 065

REACTIONS (3)
  - Dermatitis psoriasiform [Recovering/Resolving]
  - Anaemia [Unknown]
  - Clostridium difficile colitis [Unknown]
